FAERS Safety Report 17714909 (Version 2)
Quarter: 2020Q2

REPORT INFORMATION
  Report Type: Spontaneous
  Country: CZ (occurrence: CZ)
  Receive Date: 20200427
  Receipt Date: 20200505
  Transmission Date: 20200714
  Serious: Yes (Other)
  Sender: FDA-Public Use
  Company Number: CZ-MYLANLABS-2020M1041395

PATIENT
  Sex: Male

DRUGS (5)
  1. ATORVASTATIN [Suspect]
     Active Substance: ATORVASTATIN
     Indication: PRODUCT USED FOR UNKNOWN INDICATION
     Dosage: 20 MG 1-0-1
     Route: 065
     Dates: start: 2017
  2. METFORMIN [Suspect]
     Active Substance: METFORMIN HYDROCHLORIDE
     Indication: DIABETES MELLITUS
     Dosage: 1000 MG 1-0-1
     Route: 065
     Dates: start: 2015, end: 2017
  3. METFORMIN [Suspect]
     Active Substance: METFORMIN HYDROCHLORIDE
     Dosage: 1000 MG 1-0-1
     Route: 065
     Dates: start: 2017
  4. ANOPYRIN [Suspect]
     Active Substance: ASPIRIN
     Indication: PRODUCT USED FOR UNKNOWN INDICATION
     Dosage: 100 MG, QD
     Route: 065
     Dates: start: 2016
  5. GLIPTIN [Suspect]
     Active Substance: SITAGLIPTIN PHOSPHATE
     Indication: DIABETES MELLITUS
     Dosage: UNK
     Route: 065
     Dates: start: 2016, end: 2017

REACTIONS (5)
  - Blood pressure increased [Recovering/Resolving]
  - Diabetic nephropathy [Unknown]
  - Diabetes mellitus [Recovering/Resolving]
  - Weight increased [Unknown]
  - Low density lipoprotein increased [Recovering/Resolving]

NARRATIVE: CASE EVENT DATE: 2015
